FAERS Safety Report 9664999 (Version 1)
Quarter: 2013Q4

REPORT INFORMATION
  Report Type: Report from Study
  Country: US (occurrence: US)
  Receive Date: 20131101
  Receipt Date: 20131101
  Transmission Date: 20140711
  Serious: Yes (Hospitalization, Other)
  Sender: FDA-Public Use
  Company Number: US-PFIZER INC-2013310063

PATIENT
  Age: 78 Year
  Sex: Female

DRUGS (4)
  1. CELEBREX [Suspect]
     Dosage: UNK
  2. HUMIRA [Suspect]
     Indication: RHEUMATOID ARTHRITIS
     Dosage: 40 MG, UNK
     Dates: start: 2008
  3. METHOTREXATE [Concomitant]
     Dosage: 15 MG, WEEKLY ((2.5 MILLIGRAM PILLS), UNK (6 DOSAGE FORMS, 1 IN 1 WK))
  4. FOLIC ACID [Concomitant]
     Dosage: 1 DF, 1X/DAY

REACTIONS (8)
  - Ulcer haemorrhage [Unknown]
  - Haematemesis [Unknown]
  - Vomiting [Unknown]
  - Pollakiuria [Unknown]
  - Bladder prolapse [Recovered/Resolved]
  - Pruritus [Recovered/Resolved]
  - Pruritus [Not Recovered/Not Resolved]
  - Erythema [Unknown]
